FAERS Safety Report 5944975-8 (Version None)
Quarter: 2008Q4

REPORT INFORMATION
  Report Type: 
  Country: None (occurrence: None)
  Receive Date: 20081107
  Receipt Date: 20081029
  Transmission Date: 20090506
  Serious: Yes (Hospitalization, Other)
  Sender: FDA-Public Use
  Company Number: US-MERCK-0807USA02771

PATIENT
  Age: 68 Year
  Sex: Female

DRUGS (15)
  1. FOSAMAX [Suspect]
     Indication: OSTEOPOROSIS
     Route: 048
     Dates: start: 20030101, end: 20060101
  2. CORTICOSTEROIDS (UNSPECIFIED) [Concomitant]
     Route: 065
     Dates: start: 20010101
  3. [THERAPY UNSPECIFIED] [Concomitant]
     Indication: HYPERTENSION
     Route: 065
     Dates: start: 20010101, end: 20080101
  4. [THERAPY UNSPECIFIED] [Concomitant]
     Indication: BLOOD CHOLESTEROL INCREASED
     Route: 065
     Dates: start: 19950101
  5. PREDNISONE [Concomitant]
     Indication: SARCOIDOSIS
     Route: 065
     Dates: start: 20000101, end: 20080101
  6. PREDNISONE [Concomitant]
     Indication: ASTHMA
     Route: 065
     Dates: start: 20000101, end: 20080101
  7. CELEBREX [Concomitant]
     Indication: ARTHRITIS
     Route: 065
     Dates: start: 20000101, end: 20050101
  8. AMITRIPTYLINE HYDROCHLORIDE [Concomitant]
     Indication: TEMPOROMANDIBULAR JOINT SYNDROME
     Route: 065
     Dates: start: 20000101, end: 20080101
  9. PROTONIX [Concomitant]
     Indication: REGURGITATION
     Route: 065
     Dates: start: 20000101, end: 20080101
  10. ZOCOR [Concomitant]
     Indication: BLOOD CHOLESTEROL INCREASED
     Route: 065
     Dates: start: 20000101, end: 20080101
  11. KLOR-CON [Concomitant]
     Indication: BLOOD POTASSIUM
     Route: 065
     Dates: start: 20020101, end: 20080101
  12. FLONASE [Concomitant]
     Indication: HYPERSENSITIVITY
     Route: 065
     Dates: start: 20000101, end: 20080101
  13. AMOXICILLIN [Concomitant]
     Indication: ANTIBIOTIC LEVEL
     Route: 065
     Dates: start: 20020101, end: 20080101
  14. BENICAR [Concomitant]
     Indication: BLOOD PRESSURE
     Route: 065
     Dates: start: 20020101, end: 20070101
  15. DURADEX [Concomitant]
     Indication: COUGH
     Route: 065
     Dates: start: 20000101, end: 20080101

REACTIONS (12)
  - ARTHROPATHY [None]
  - FISTULA [None]
  - HERPES ZOSTER [None]
  - INFECTION [None]
  - OSTEITIS DEFORMANS [None]
  - OSTEOMYELITIS [None]
  - OSTEONECROSIS [None]
  - PAIN [None]
  - PNEUMONIA [None]
  - RENAL DISORDER [None]
  - RHEUMATOID ARTHRITIS [None]
  - TEMPOROMANDIBULAR JOINT SYNDROME [None]
